FAERS Safety Report 4937154-4 (Version None)
Quarter: 2006Q1

REPORT INFORMATION
  Report Type: 
  Country: None (occurrence: None)
  Receive Date: 20060307
  Receipt Date: 20060307
  Transmission Date: 20060701
  Serious: Yes (Other)
  Sender: FDA-Public Use
  Company Number: None

PATIENT
  Age: 47 Year
  Sex: Male
  Weight: 90.7194 kg

DRUGS (2)
  1. PERCODAN [Suspect]
     Indication: PROCEDURAL PAIN
     Dosage: ONE PO Q 6 HOURS PRN PAIN
     Route: 048
  2. PERCODAN [Suspect]
     Indication: TESTICULAR CANCER METASTATIC
     Dosage: ONE PO Q 6 HOURS PRN PAIN
     Route: 048

REACTIONS (3)
  - DRUG EFFECT DECREASED [None]
  - SEDATION [None]
  - THERAPEUTIC RESPONSE UNEXPECTED WITH DRUG SUBSTITUTION [None]
